FAERS Safety Report 13104464 (Version 1)
Quarter: 2017Q1

REPORT INFORMATION
  Report Type: Report from Study
  Country: IT (occurrence: IT)
  Receive Date: 20170111
  Receipt Date: 20170111
  Transmission Date: 20170428
  Serious: Yes (Other)
  Sender: FDA-Public Use
  Company Number: IT-TEVA-726768ACC

PATIENT
  Age: 53 Year
  Sex: Female

DRUGS (3)
  1. CARBAMAZEPINE. [Suspect]
     Active Substance: CARBAMAZEPINE
  2. CLONAZEPAM. [Interacting]
     Active Substance: CLONAZEPAM
  3. PHENOBARBITAL. [Interacting]
     Active Substance: PHENOBARBITAL

REACTIONS (5)
  - Fall [Recovered/Resolved]
  - Convulsive threshold lowered [Recovered/Resolved]
  - Drug interaction [Recovered/Resolved]
  - Confusional state [Recovered/Resolved]
  - Atonic seizures [Recovered/Resolved]
